FAERS Safety Report 20665340 (Version 2)
Quarter: 2022Q3

REPORT INFORMATION
  Report Type: Report from Study
  Country: IT (occurrence: IT)
  Receive Date: 20220401
  Receipt Date: 20220722
  Transmission Date: 20221027
  Serious: Yes (Hospitalization, Other)
  Sender: FDA-Public Use
  Company Number: IT-UCBSA-2022017653

PATIENT
  Sex: Female

DRUGS (3)
  1. LACOSAMIDE [Suspect]
     Active Substance: LACOSAMIDE
     Indication: Product used for unknown indication
     Dosage: 150MG DAILY
  2. LACOSAMIDE [Suspect]
     Active Substance: LACOSAMIDE
     Dosage: 200MG PER DAY
  3. COUMADIN [Concomitant]
     Active Substance: WARFARIN SODIUM
     Indication: Budd-Chiari syndrome

REACTIONS (14)
  - Fall [Unknown]
  - Subdural haemorrhage [Unknown]
  - Balance disorder [Recovering/Resolving]
  - Speech disorder [Unknown]
  - Surgery [Unknown]
  - Petit mal epilepsy [Unknown]
  - Budd-Chiari syndrome [Unknown]
  - Illness [Not Recovered/Not Resolved]
  - Constipation [Unknown]
  - Stress [Unknown]
  - Head injury [Unknown]
  - Memory impairment [Unknown]
  - Dizziness [Recovering/Resolving]
  - Confusional state [Recovering/Resolving]

NARRATIVE: CASE EVENT DATE: 20220101
